FAERS Safety Report 14302368 (Version 1)
Quarter: 2017Q4

REPORT INFORMATION
  Report Type: Spontaneous
  Country: US (occurrence: US)
  Receive Date: 20171219
  Receipt Date: 20171219
  Transmission Date: 20180321
  Serious: No
  Sender: FDA-Public Use
  Company Number: US-SUPERNUS PHARMACEUTICALS, INC.-2017SUP00080

PATIENT
  Sex: Female
  Weight: 58.5 kg

DRUGS (4)
  1. TROKENDI XR [Suspect]
     Active Substance: TOPIRAMATE
     Indication: TEMPORAL LOBE EPILEPSY
     Dosage: 100 MG, 1X/DAY AT NIGHT
     Route: 048
     Dates: start: 2016
  2. TRILEPTAL [Concomitant]
     Active Substance: OXCARBAZEPINE
     Dosage: 300 MG, 1X/DAY 300 MG IN THE MORNING AND 600 MG AT NIGHTTIME
  3. TRILEPTAL [Concomitant]
     Active Substance: OXCARBAZEPINE
     Dosage: 600 MG, 1X/DAY 300 MG IN THE MORNING AND 600 MG AT NIGHTTIME
  4. TROKENDI XR [Suspect]
     Active Substance: TOPIRAMATE
     Indication: TEMPORAL LOBE EPILEPSY
     Dosage: 50 MG, 1X/DAY AT NIGHT
     Route: 048
     Dates: start: 2016

REACTIONS (2)
  - Weight decreased [Unknown]
  - Aphasia [Unknown]

NARRATIVE: CASE EVENT DATE: 2016
